FAERS Safety Report 4689873-5 (Version None)
Quarter: 2005Q2

REPORT INFORMATION
  Report Type: 
  Country: None (occurrence: None)
  Receive Date: 20050614
  Receipt Date: 20050606
  Transmission Date: 20051028
  Serious: Yes (Hospitalization, Disabling)
  Sender: FDA-Public Use
  Company Number: 200515227GDDC

PATIENT
  Age: 48 Year
  Sex: Male

DRUGS (17)
  1. ARAVA [Suspect]
     Indication: PSORIATIC ARTHROPATHY
     Route: 048
     Dates: start: 20050505, end: 20050523
  2. TOLTERODINE [Concomitant]
     Dosage: DOSE: UNK
  3. CO-DYDRAMOL [Concomitant]
     Dosage: DOSE: UNK
  4. BETAMETHASONE [Concomitant]
     Dosage: DOSE: UNK
  5. EPILIM [Concomitant]
     Dosage: DOSE: UNK
  6. MEBEVERINE [Concomitant]
     Dosage: DOSE: UNK
  7. PEPPERMINT OIL [Concomitant]
     Dosage: DOSE: UNK
  8. MAXEPA                                  /UNK/ [Concomitant]
     Dosage: DOSE: UNK
  9. TEGRETOL [Concomitant]
     Dosage: DOSE: UNK
  10. FOLIC ACID [Concomitant]
     Dosage: DOSE: UNK
  11. POLYTAR LIQUID [Concomitant]
     Dosage: DOSE: UNK
     Route: 061
  12. NEURONTIN [Concomitant]
     Dosage: DOSE: UNK
  13. LOSEC [Concomitant]
     Dosage: DOSE: UNK
  14. TRIMETHOPRIM [Concomitant]
     Dosage: DOSE: UNK
  15. HYDROGEN PEROXIDE SOLUTION [Concomitant]
     Dosage: DOSE: UNK
  16. PRED FORTE [Concomitant]
     Dosage: DOSE: UNK
  17. ITRACONAZOLE [Concomitant]
     Dosage: DOSE: UNK

REACTIONS (2)
  - DYSPHAGIA [None]
  - MOUTH ULCERATION [None]
